FAERS Safety Report 4386030-7 (Version None)
Quarter: 2004Q2

REPORT INFORMATION
  Report Type: 
  Country: None (occurrence: None)
  Receive Date: 20040610
  Receipt Date: 20040426
  Transmission Date: 20050107
  Serious: No
  Sender: FDA-Public Use
  Company Number: A03200401290

PATIENT
  Age: 65 Year
  Sex: Male
  Weight: 96.1626 kg

DRUGS (12)
  1. ELOXATIN [Suspect]
     Indication: COLORECTAL CANCER
     Dosage: 200 MG Q2W - INTRAVENOUS NOS
     Route: 042
     Dates: start: 20040419, end: 20040419
  2. ELOXATIN [Suspect]
     Indication: METASTASES TO LIVER
     Dosage: 200 MG Q2W - INTRAVENOUS NOS
     Route: 042
     Dates: start: 20040419, end: 20040419
  3. AVASTIN [Suspect]
     Indication: COLORECTAL CANCER
     Dosage: INTRAVENOUS NOS
     Route: 042
  4. FLUOROURACIL [Concomitant]
  5. LEUCOVORIN CALCIUM [Concomitant]
  6. GRANISETRON [Concomitant]
  7. DEXAMETHASONE [Concomitant]
  8. SIMVASTATIN [Concomitant]
  9. OMEPRAZOLE [Concomitant]
  10. METOPROLOL TARTRATE [Concomitant]
  11. WARFARIN SODIUM [Concomitant]
  12. GLUCOSAMINE [Concomitant]

REACTIONS (1)
  - BLINDNESS TRANSIENT [None]
